FAERS Safety Report 18581621 (Version 1)
Quarter: 2020Q4

REPORT INFORMATION
  Report Type: Spontaneous
  Country: US (occurrence: US)
  Receive Date: 20201202
  Receipt Date: 20201202
  Transmission Date: 20210114
  Serious: No
  Sender: FDA-Public Use
  Company Number: None

PATIENT
  Age: 18 Year
  Sex: Female

DRUGS (3)
  1. KLONOPIN [Suspect]
     Active Substance: CLONAZEPAM
  2. LAMICTAL XR [Suspect]
     Active Substance: LAMOTRIGINE
  3. ZARONTIN [Suspect]
     Active Substance: ETHOSUXIMIDE
     Dosage: ?          OTHER FREQUENCY:2 IN AM AND 2 IN P;?

REACTIONS (3)
  - Treatment noncompliance [None]
  - Drug monitoring procedure not performed [None]
  - Generalised tonic-clonic seizure [None]
